FAERS Safety Report 9442920 (Version 2)
Quarter: 2013Q4

REPORT INFORMATION
  Report Type: Spontaneous
  Country: CY (occurrence: CY)
  Receive Date: 20130806
  Receipt Date: 20131205
  Transmission Date: 20140711
  Serious: Yes (Life-Threatening)
  Sender: FDA-Public Use
  Company Number: CY-JNJFOC-20130801170

PATIENT
  Age: 9 Year
  Sex: Male

DRUGS (2)
  1. CONCERTA [Suspect]
     Indication: ATTENTION DEFICIT/HYPERACTIVITY DISORDER
     Route: 048
     Dates: start: 201209, end: 201305
  2. RISPERDAL [Suspect]
     Indication: AGGRESSION
     Route: 048
     Dates: start: 201209, end: 201305

REACTIONS (1)
  - Tic [Recovered/Resolved]
